FAERS Safety Report 7814772-7 (Version None)
Quarter: 2011Q4

REPORT INFORMATION
  Report Type: 
  Country: None (occurrence: None)
  Receive Date: 20111013
  Receipt Date: 20111013
  Transmission Date: 20120403
  Serious: Yes (Hospitalization)
  Sender: FDA-Public Use
  Company Number: None

PATIENT
  Age: 88 Year
  Sex: Male
  Weight: 82 kg

DRUGS (1)
  1. BACLOFEN [Suspect]
     Indication: PAIN
     Dosage: MG PO
     Route: 048
     Dates: start: 20110927

REACTIONS (3)
  - WITHDRAWAL SYNDROME [None]
  - CONFUSIONAL STATE [None]
  - MENTAL STATUS CHANGES [None]
